FAERS Safety Report 7716882-1 (Version None)
Quarter: 2011Q3

REPORT INFORMATION
  Report Type: 
  Country: None (occurrence: None)
  Receive Date: 20110829
  Receipt Date: 20110816
  Transmission Date: 20111222
  Serious: Yes (Hospitalization)
  Sender: FDA-Public Use
  Company Number: AR-GENENTECH-323428

PATIENT
  Sex: Male

DRUGS (1)
  1. XOLAIR [Suspect]
     Indication: ASTHMA
     Dosage: 2 DF, 1/WEEK
     Route: 058
     Dates: start: 20090101, end: 20090101

REACTIONS (7)
  - FATIGUE [None]
  - APPETITE DISORDER [None]
  - ASTHMA [None]
  - HYPOTENSION [None]
  - ASPHYXIA [None]
  - TACHYCARDIA [None]
  - MALAISE [None]
